FAERS Safety Report 24329284 (Version 3)
Quarter: 2024Q4

REPORT INFORMATION
  Report Type: Spontaneous
  Country: JP (occurrence: JP)
  Receive Date: 20240917
  Receipt Date: 20241029
  Transmission Date: 20250114
  Serious: Yes (Other)
  Sender: JOHNSON AND JOHNSON
  Company Number: JP-BAYER-2024A132107

PATIENT
  Age: 85 Year
  Sex: Female

DRUGS (12)
  1. XARELTO [Suspect]
     Active Substance: RIVAROXABAN
     Indication: Atrial fibrillation
     Dosage: 15 MG, ONCE A DAY, AFTER BREAKFAST.
     Route: 048
  2. XARELTO [Suspect]
     Active Substance: RIVAROXABAN
     Indication: Cerebrovascular accident prophylaxis
     Route: 048
  3. BROMFENAC SODIUM [Concomitant]
     Active Substance: BROMFENAC SODIUM
     Dosage: RIGHT EYE, BID
  4. BETAMETHASONE [Concomitant]
     Active Substance: BETAMETHASONE
     Dosage: RIGHT EYE, TID
     Route: 031
  5. LEVOFLOXACIN [Concomitant]
     Active Substance: LEVOFLOXACIN
     Dosage: RIGHT EYE, TID
     Route: 031
  6. CANALIA [DEXLANSOPRAZOLE] [Concomitant]
     Dosage: 1 DF, ONCE A DAY, AFTER BREAKFAST
  7. CANDESARTAN CILEXETIL [Concomitant]
     Active Substance: CANDESARTAN CILEXETIL
     Dosage: 4 MG, ONCE A DAY, AFTER BREAKFAST
  8. AMLODINE [AMLODIPINE] [Concomitant]
     Dosage: 2.5 MG, ONCE A DAY, AFTER BREAKFAST
  9. TORSEMIDE [Concomitant]
     Active Substance: TORSEMIDE
     Dosage: 8 MG, ONCE A DAY, AFTER BREAKFAST
  10. LANSOPRAZOLE [Concomitant]
     Active Substance: LANSOPRAZOLE
     Dosage: 15 MG, ONCE A DAY, AFTER BREAKFAST
  11. BETAHISTINE MESILATE [Concomitant]
     Active Substance: BETAHISTINE MESILATE
     Dosage: 6 MG, TID, EVERY AFTER MEAL
  12. DIPHENIDOL HYDROCHLORIDE [Concomitant]
     Active Substance: DIPHENIDOL HYDROCHLORIDE
     Dosage: 25 MG, TID, EVERY AFTER MEAL

REACTIONS (2)
  - Prothrombin time prolonged [Not Recovered/Not Resolved]
  - Activated partial thromboplastin time prolonged [Not Recovered/Not Resolved]

NARRATIVE: CASE EVENT DATE: 20240709
